FAERS Safety Report 7568669-0 (Version None)
Quarter: 2011Q2

REPORT INFORMATION
  Report Type: 
  Country: None (occurrence: None)
  Receive Date: 20110623
  Receipt Date: 20110613
  Transmission Date: 20111010
  Serious: Yes (Hospitalization)
  Sender: FDA-Public Use
  Company Number: DE-BRISTOL-MYERS SQUIBB COMPANY-14936231

PATIENT
  Age: 72 Year
  Sex: Male

DRUGS (2)
  1. WARFARIN SODIUM [Suspect]
     Indication: THROMBOSIS PROPHYLAXIS
     Dosage: INTERRUPTED ON 11JAN2010; RESTARTED 14JAN10,1DF=2-4MG.
     Route: 048
     Dates: start: 20090406
  2. PLACEBO [Suspect]
     Indication: THROMBOSIS PROPHYLAXIS
     Dosage: INTERRUPTED ON 11JAN2010; RESTARTED 14JAN10
     Route: 048
     Dates: start: 20090406

REACTIONS (1)
  - GASTRITIS [None]
